FAERS Safety Report 4493411-X (Version None)
Quarter: 2004Q4

REPORT INFORMATION
  Report Type: 
  Country: None (occurrence: None)
  Receive Date: 20041104
  Receipt Date: 20041028
  Transmission Date: 20050328
  Serious: Yes (Hospitalization)
  Sender: FDA-Public Use
  Company Number: SE-MERCK-0411SWE00001

PATIENT
  Age: 51 Year
  Sex: Male

DRUGS (2)
  1. VIOXX [Suspect]
     Indication: NECK PAIN
     Route: 048
     Dates: start: 20021001, end: 20040930
  2. VIOXX [Suspect]
     Route: 048
     Dates: start: 20021001, end: 20040930

REACTIONS (2)
  - ACUTE MYOCARDIAL INFARCTION [None]
  - OVERDOSE [None]
